FAERS Safety Report 9248633 (Version 1)
Quarter: 2013Q2

REPORT INFORMATION
  Report Type: Spontaneous
  Country: BR (occurrence: BR)
  Receive Date: 20130423
  Receipt Date: 20130423
  Transmission Date: 20140414
  Serious: Yes (Other)
  Sender: FDA-Public Use
  Company Number: BR-ELI_LILLY_AND_COMPANY-BR201304003996

PATIENT
  Sex: Female

DRUGS (1)
  1. ZYPREXA [Suspect]
     Dosage: 10 MG, QD
     Route: 065
     Dates: start: 20130411, end: 20130411

REACTIONS (5)
  - Hallucination [Unknown]
  - Tachycardia [Unknown]
  - Dyspnoea [Unknown]
  - Blood pressure increased [Unknown]
  - Off label use [Unknown]
